FAERS Safety Report 6706075-9 (Version None)
Quarter: 2010Q2

REPORT INFORMATION
  Report Type: 
  Country: None (occurrence: None)
  Receive Date: 20100423
  Receipt Date: 20091231
  Transmission Date: 20101027
  Serious: No
  Sender: FDA-Public Use
  Company Number: ALL1-2009-04210

PATIENT
  Age: 40 Year
  Sex: Male
  Weight: 88.4 kg

DRUGS (4)
  1. VYVANSE [Suspect]
     Indication: ATTENTION DEFICIT/HYPERACTIVITY DISORDER
     Dosage: 40 MG, 1X/DAY:QD, ORAL
     Route: 048
     Dates: start: 20091229
  2. XANAX [Concomitant]
  3. FIORINAL (ACETYLSALICYLIC ACID, BUTALBITAL, CAFFEINE, PHENACETIN) [Concomitant]
  4. PRILOSEC (OMEPRAZOLE) [Concomitant]

REACTIONS (4)
  - CHEST DISCOMFORT [None]
  - DRY MOUTH [None]
  - HEADACHE [None]
  - TREMOR [None]
